FAERS Safety Report 5904290-5 (Version None)
Quarter: 2008Q4

REPORT INFORMATION
  Report Type: 
  Country: None (occurrence: None)
  Receive Date: 20081001
  Receipt Date: 20080630
  Transmission Date: 20090506
  Serious: Yes (Hospitalization, Other)
  Sender: FDA-Public Use
  Company Number: US-BRISTOL-MYERS SQUIBB COMPANY-14245666

PATIENT
  Sex: Male
  Weight: 101 kg

DRUGS (12)
  1. CETUXIMAB [Suspect]
     Indication: NEOPLASM MALIGNANT
     Dosage: 2 MG/100
     Route: 041
     Dates: start: 20080410, end: 20080424
  2. DASATINIB [Suspect]
     Indication: NEOPLASM MALIGNANT
     Dosage: 50 MG
     Route: 048
     Dates: start: 20080409, end: 20080424
  3. ARMOUR THYROID [Concomitant]
  4. CENTRUM [Concomitant]
  5. NORVASC [Concomitant]
  6. VITAMIN D [Concomitant]
  7. ASPIRIN [Concomitant]
  8. DIOVAN [Concomitant]
  9. GLUCOSAMINE [Concomitant]
  10. COLACE [Concomitant]
  11. ADVAIR DISKUS 100/50 [Concomitant]
  12. ALEVE [Concomitant]

REACTIONS (3)
  - ABDOMINAL DISTENSION [None]
  - MALIGNANT NEOPLASM PROGRESSION [None]
  - PLEURAL EFFUSION [None]
